FAERS Safety Report 20530258 (Version 2)
Quarter: 2022Q1

REPORT INFORMATION
  Report Type: Spontaneous
  Country: US (occurrence: US)
  Receive Date: 20220301
  Receipt Date: 20220308
  Transmission Date: 20220424
  Serious: Yes (Other)
  Sender: FDA-Public Use
  Company Number: US-AMGEN-USASP2022034030

PATIENT

DRUGS (1)
  1. NEUPOGEN [Suspect]
     Active Substance: FILGRASTIM
     Indication: Haematopoietic stem cell mobilisation
     Dosage: UNK (EVERY 72 H AT APPROXIMATELY 10 MCG/KG FOR UP TO 10 DOSES)
     Route: 058

REACTIONS (2)
  - Thrombosis [Unknown]
  - Therapeutic response unexpected [Unknown]
